FAERS Safety Report 5391235-2 (Version None)
Quarter: 2007Q3

REPORT INFORMATION
  Report Type: 
  Country: None (occurrence: None)
  Receive Date: 20070719
  Receipt Date: 20070710
  Transmission Date: 20080115
  Serious: Yes (Hospitalization)
  Sender: FDA-Public Use
  Company Number: BR-AVENTIS-200713451EU

PATIENT
  Age: 79 Year
  Sex: Male

DRUGS (3)
  1. LASIX [Suspect]
     Indication: SWELLING
     Dosage: DOSE: 2 TAB
     Route: 048
     Dates: start: 20060701, end: 20070201
  2. LASIX [Suspect]
     Route: 042
     Dates: start: 20070501, end: 20070601
  3. ALDACTONE [Suspect]
     Indication: SWELLING
     Dosage: DOSE: 2 TAB
     Route: 048

REACTIONS (6)
  - ASTHENIA [None]
  - EYE DISORDER [None]
  - IMMOBILE [None]
  - PANCREATITIS [None]
  - PYREXIA [None]
  - SOMNOLENCE [None]
